FAERS Safety Report 5337032-5 (Version None)
Quarter: 2007Q2

REPORT INFORMATION
  Report Type: 
  Country: None (occurrence: None)
  Receive Date: 20070529
  Receipt Date: 20070517
  Transmission Date: 20071010
  Serious: Yes (Disabling)
  Sender: FDA-Public Use
  Company Number: GB-ROCHE-488869

PATIENT
  Age: 59 Year
  Sex: Female
  Weight: 85 kg

DRUGS (18)
  1. XENICAL [Suspect]
     Indication: OBESITY
     Route: 048
     Dates: start: 20061026, end: 20070222
  2. VENTOLIN [Concomitant]
     Indication: ASTHMA
     Route: 055
  3. HYDROXYZINE HYDROCHLORIDE [Concomitant]
     Indication: DRUG USE FOR UNKNOWN INDICATION
     Route: 048
  4. PREDNISOLONE E-C [Concomitant]
  5. TRIMETHOPRIM [Concomitant]
  6. CO-DYDRAMOL [Concomitant]
  7. POLYTAR PLUS [Concomitant]
  8. FOLIC ACID [Concomitant]
  9. CALCIUM/VITAMIN D [Concomitant]
  10. AMITRIPTYLINE HYDROCHLORIDE [Concomitant]
  11. METHOTREXATE [Concomitant]
  12. BECOTIDE 100 [Concomitant]
  13. FUROSEMIDE [Concomitant]
  14. DOVONEX [Concomitant]
  15. ELOCON [Concomitant]
  16. EPADERM [Concomitant]
  17. LOSARTAN POTASSIUM [Concomitant]
  18. METFORMIN HYDROCHLORIDE [Concomitant]

REACTIONS (2)
  - DIABETES MELLITUS NON-INSULIN-DEPENDENT [None]
  - LOWER RESPIRATORY TRACT INFECTION [None]
